FAERS Safety Report 7474590-9 (Version None)
Quarter: 2011Q1

REPORT INFORMATION
  Report Type: 
  Country: None (occurrence: None)
  Receive Date: 20110302
  Receipt Date: 20100728
  Transmission Date: 20110831
  Serious: Yes (Other)
  Sender: FDA-Public Use
  Company Number: 163-21880-10061246

PATIENT
  Age: 54 Year
  Sex: Female
  Weight: 51.2565 kg

DRUGS (15)
  1. CYCLOBENZAPRINE [Concomitant]
  2. HYDROCODONE/ACETAMINOPHEN (REMEDEINE) [Concomitant]
  3. VELCADE [Concomitant]
  4. VITAMIN D [Concomitant]
  5. LIDODERM [Concomitant]
  6. OXYCONTIN [Concomitant]
  7. REVLIMID [Suspect]
     Indication: MULTIPLE MYELOMA
     Dosage: 15 MG, QOD, D1-14 Q21 DAYS FOR CYCLE 1+2, PO; 15 MG, QD, D1-14 Q 21 DAYS WITH CYCLE 3, PO
     Route: 048
     Dates: start: 20100101
  8. REVLIMID [Suspect]
     Indication: MULTIPLE MYELOMA
     Dosage: 15 MG, QOD, D1-14 Q21 DAYS FOR CYCLE 1+2, PO; 15 MG, QD, D1-14 Q 21 DAYS WITH CYCLE 3, PO
     Route: 048
     Dates: start: 20100301
  9. DEXAMETHASONE [Concomitant]
  10. MIRALAX [Concomitant]
  11. ASPIRIN [Concomitant]
  12. ZOMETA [Concomitant]
  13. MULTIVITAMIN [Concomitant]
  14. LYRICA [Concomitant]
  15. ULTRAM [Concomitant]

REACTIONS (8)
  - CONTUSION [None]
  - NAUSEA [None]
  - OEDEMA [None]
  - FATIGUE [None]
  - PAIN IN JAW [None]
  - ANAEMIA [None]
  - CONSTIPATION [None]
  - DIZZINESS [None]
